FAERS Safety Report 6431289-5 (Version None)
Quarter: 2009Q4

REPORT INFORMATION
  Report Type: 
  Country: None (occurrence: None)
  Receive Date: 20091105
  Receipt Date: 20091105
  Transmission Date: 20100525
  Serious: No
  Sender: FDA-Public Use
  Company Number: None

PATIENT
  Age: 42 Year
  Sex: Female
  Weight: 61.8 kg

DRUGS (1)
  1. PRISTIQ [Suspect]
     Indication: DEPRESSION
     Dosage: 50MG 1X DAILY ORAL
     Route: 048
     Dates: start: 20090401, end: 20091026

REACTIONS (7)
  - AGGRESSION [None]
  - BALANCE DISORDER [None]
  - DEPENDENCE [None]
  - FALL [None]
  - FREQUENT BOWEL MOVEMENTS [None]
  - SUICIDAL IDEATION [None]
  - VERTIGO [None]
